FAERS Safety Report 7624213-0 (Version None)
Quarter: 2011Q3

REPORT INFORMATION
  Report Type: 
  Country: None (occurrence: None)
  Receive Date: 20110720
  Receipt Date: 20110720
  Transmission Date: 20111222
  Serious: Yes (Hospitalization)
  Sender: FDA-Public Use
  Company Number: None

PATIENT
  Age: 27 Year
  Sex: Female
  Weight: 68.038 kg

DRUGS (1)
  1. ERRIN [Suspect]
     Indication: CONTRACEPTION
     Route: 048
     Dates: start: 20100601, end: 20110601

REACTIONS (2)
  - PREGNANCY ON ORAL CONTRACEPTIVE [None]
  - ECTOPIC PREGNANCY [None]
